FAERS Safety Report 9238035 (Version 1)
Quarter: 2013Q1

REPORT INFORMATION
  Report Type: Spontaneous
  Country: US (occurrence: None)
  Receive Date: 20121106
  Receipt Date: 20121106
  Transmission Date: 20140127
  Serious: Yes (Other)
  Sender: FDA-Public Use
  Company Number: 1000039159

PATIENT
  Age: 71 Year
  Sex: Male

DRUGS (9)
  1. DALIRESP [Suspect]
     Indication: CHRONIC OBSTRUCTIVE PULMONARY DISEASE
     Dosage: (500 MCG, 1 IN 1 D)
     Route: 048
     Dates: start: 20120828, end: 20120930
  2. LANTUS (INSULIN GLARGINE) (INSULIN GLARGINE) [Concomitant]
  3. NOVOLOG (INSULIN ASPART) (INSULIN ASPART) [Concomitant]
  4. FUROSEMIDE [Concomitant]
  5. VIT D (ERGOCALCIFEROL) (ERGOCALCIFEROL) [Concomitant]
  6. SIMVASTATIN (SIMVASTATIN) (SIMVASTATIN) [Concomitant]
  7. DIOVAN (VALSARTAN) (VALSARTAN) [Concomitant]
  8. ASPIRIN (ACETYLSALICYLIC ACID) (ACETYLSALICYLIC ACID) [Concomitant]
  9. CIPROFLOXACIN (CIPROFLOXACIN) (CIPROFLOXACIN) [Concomitant]

REACTIONS (1)
  - Atrial fibrillation [None]
